FAERS Safety Report 24349634 (Version 1)
Quarter: 2024Q3

REPORT INFORMATION
  Report Type: Spontaneous
  Country: RO (occurrence: RO)
  Receive Date: 20240923
  Receipt Date: 20240923
  Transmission Date: 20241017
  Serious: Yes (Other)
  Sender: ABBVIE
  Company Number: RO-ABBVIE-5928190

PATIENT
  Age: 56 Year
  Sex: Male

DRUGS (2)
  1. VENETOCLAX [Suspect]
     Active Substance: VENETOCLAX
     Indication: Chronic lymphocytic leukaemia
     Dosage: DURATION WAS ONE YEAR.
     Route: 048
  2. OBINUTUZUMAB [Concomitant]
     Active Substance: OBINUTUZUMAB
     Indication: Product used for unknown indication
     Dosage: 6 ADMINISTRATIONS
     Route: 042

REACTIONS (3)
  - Richter^s syndrome [Unknown]
  - Lymphadenopathy [Unknown]
  - Diffuse large B-cell lymphoma [Unknown]
